FAERS Safety Report 8200025-4 (Version None)
Quarter: 2012Q1

REPORT INFORMATION
  Report Type: 
  Country: None (occurrence: None)
  Receive Date: 20120312
  Receipt Date: 20120307
  Transmission Date: 20120608
  Serious: No
  Sender: FDA-Public Use
  Company Number: US-PFIZER INC-2012063207

PATIENT
  Sex: Female
  Weight: 56.689 kg

DRUGS (3)
  1. CHANTIX [Suspect]
     Indication: SMOKING CESSATION THERAPY
     Dosage: 0.5 MG, DAILY
     Dates: start: 20120305
  2. ADVAIR DISKUS 100/50 [Concomitant]
     Indication: EMPHYSEMA
     Dosage: 550 MG, 2X/DAY
  3. COMBIVENT [Concomitant]
     Indication: EMPHYSEMA
     Dosage: 14.7 MG, 4X/DAY

REACTIONS (1)
  - NERVOUSNESS [None]
